FAERS Safety Report 19131640 (Version 3)
Quarter: 2021Q2

REPORT INFORMATION
  Report Type: Report from Study
  Country: US (occurrence: US)
  Receive Date: 20210414
  Receipt Date: 20210629
  Transmission Date: 20210717
  Serious: No
  Sender: FDA-Public Use
  Company Number: NVSC2021US079656

PATIENT
  Sex: Female

DRUGS (2)
  1. PRAVASTATIN. [Suspect]
     Active Substance: PRAVASTATIN
     Indication: PRODUCT USED FOR UNKNOWN INDICATION
     Dosage: UNK
     Route: 065
  2. ENTRESTO [Suspect]
     Active Substance: SACUBITRIL\VALSARTAN
     Indication: PRODUCT USED FOR UNKNOWN INDICATION
     Dosage: 1 DF,BID (24/26 MG)
     Route: 065

REACTIONS (7)
  - Muscle spasms [Unknown]
  - Pain in extremity [Unknown]
  - Fatigue [Unknown]
  - Dyspnoea [Unknown]
  - Anxiety [Unknown]
  - Blood glucose increased [Unknown]
  - Dysphonia [Unknown]
